FAERS Safety Report 8979290 (Version 2)
Quarter: 2013Q1

REPORT INFORMATION
  Report Type: Spontaneous
  Country: US (occurrence: US)
  Receive Date: 20121221
  Receipt Date: 20130128
  Transmission Date: 20140127
  Serious: Yes (Other)
  Sender: FDA-Public Use
  Company Number: US-PFIZER INC-2012320194

PATIENT
  Age: 19 Year
  Sex: Male

DRUGS (2)
  1. ROBITUSSIN LINGERING COLD LONG-ACTING COUGH GELS [Suspect]
     Indication: NASOPHARYNGITIS
     Dosage: UNK
     Dates: start: 201212
  2. MUCINEX DM [Suspect]
     Indication: NASOPHARYNGITIS
     Dosage: UNK
     Dates: start: 201212

REACTIONS (5)
  - Convulsion [Unknown]
  - Eye disorder [Unknown]
  - Musculoskeletal stiffness [Unknown]
  - Muscle spasms [Unknown]
  - Terminal insomnia [Unknown]
